FAERS Safety Report 9759566 (Version 1)
Quarter: 2013Q4

REPORT INFORMATION
  Report Type: Spontaneous
  Country: US (occurrence: US)
  Receive Date: 20131216
  Receipt Date: 20131216
  Transmission Date: 20140711
  Serious: No
  Sender: FDA-Public Use
  Company Number: US-GILEAD-2010-0028068

PATIENT
  Age: 57 Year
  Sex: Female

DRUGS (20)
  1. LETAIRIS [Suspect]
     Indication: PULMONARY ARTERIAL HYPERTENSION
     Route: 048
     Dates: start: 20071031
  2. ASPIRIN [Concomitant]
  3. TORSEMIDE [Concomitant]
  4. SPIRONOLACTONE [Concomitant]
  5. ALBUTEROL [Concomitant]
  6. PREDNISONE [Concomitant]
  7. FEXOFENADINE HCL [Concomitant]
  8. PRISTIQ [Concomitant]
  9. CITALOPRAM [Concomitant]
  10. CLONAZEPAM [Concomitant]
  11. NEXIUM [Concomitant]
  12. AZITHROMYCIN [Concomitant]
  13. CELLCEPT [Concomitant]
  14. SEPTRA DS [Concomitant]
  15. ZOFRAN [Concomitant]
  16. LEVOTHYROXINE [Concomitant]
  17. RECLAST [Concomitant]
  18. VICODIN [Concomitant]
  19. CALCIUM [Concomitant]
  20. VITAMIN E [Concomitant]

REACTIONS (2)
  - Influenza like illness [Not Recovered/Not Resolved]
  - Headache [Not Recovered/Not Resolved]
